FAERS Safety Report 12157637 (Version 1)
Quarter: 2016Q1

REPORT INFORMATION
  Report Type: Spontaneous
  Country: None (occurrence: None)
  Receive Date: 20160307
  Receipt Date: 20160307
  Transmission Date: 20160526
  Serious: Yes (Disabling)
  Sender: FDA-Public Use
  Company Number: None

PATIENT
  Age: 33 Year
  Sex: Female
  Weight: 47.63 kg

DRUGS (1)
  1. ADDERALL GENERIC AMPHETAMINE SAL 10MG AUROBINDO PH [Suspect]
     Active Substance: AMPHETAMINE ASPARTATE\AMPHETAMINE SULFATE\DEXTROAMPHETAMINE SACCHARATE\DEXTROAMPHETAMINE SULFATE
     Indication: ATTENTION DEFICIT/HYPERACTIVITY DISORDER
     Dosage: 1/2 TO 1 DF AS NEEDED TAKEN BY MOUTH
     Route: 048

REACTIONS (4)
  - Neck pain [None]
  - Product substitution issue [None]
  - Myositis [None]
  - Muscle tightness [None]

NARRATIVE: CASE EVENT DATE: 20160305
